FAERS Safety Report 23789966 (Version 4)
Quarter: 2024Q2

REPORT INFORMATION
  Report Type: Spontaneous
  Country: DE (occurrence: DE)
  Receive Date: 20240426
  Receipt Date: 20240528
  Transmission Date: 20240716
  Serious: Yes (Hospitalization, Other)
  Sender: FDA-Public Use
  Company Number: DE-BRISTOL-MYERS SQUIBB COMPANY-2024-044895

PATIENT
  Age: 53 Year
  Sex: Male

DRUGS (109)
  1. CISPLATIN [Suspect]
     Active Substance: CISPLATIN
     Indication: Non-small cell lung cancer
     Dosage: 155.000MG TIW
     Route: 042
     Dates: start: 20240313, end: 20240313
  2. DEXAMETHASONE [Suspect]
     Active Substance: DEXAMETHASONE
     Indication: Prophylaxis
     Dosage: UNK
     Route: 065
  3. DEXAMETHASONE [Suspect]
     Active Substance: DEXAMETHASONE
     Dosage: UNK
     Route: 065
     Dates: start: 20240319, end: 20240407
  4. DEXAMETHASONE [Suspect]
     Active Substance: DEXAMETHASONE
     Dosage: UNK
     Route: 065
     Dates: start: 20240319, end: 20240407
  5. DEXAMETHASONE [Suspect]
     Active Substance: DEXAMETHASONE
     Dosage: UNK
     Route: 065
     Dates: start: 20240319, end: 20240407
  6. DEXAMETHASONE [Suspect]
     Active Substance: DEXAMETHASONE
     Dosage: UNK
     Route: 065
     Dates: start: 20240319, end: 20240407
  7. DEXAMETHASONE [Suspect]
     Active Substance: DEXAMETHASONE
     Dosage: UNK
     Route: 065
     Dates: start: 20240408, end: 20240408
  8. DEXAMETHASONE [Suspect]
     Active Substance: DEXAMETHASONE
     Dosage: UNK
     Route: 065
     Dates: start: 20240408, end: 20240408
  9. DEXAMETHASONE [Suspect]
     Active Substance: DEXAMETHASONE
     Dosage: UNK
     Route: 065
     Dates: start: 20240408, end: 20240408
  10. DEXAMETHASONE [Suspect]
     Active Substance: DEXAMETHASONE
     Dosage: UNK
     Route: 065
     Dates: start: 20240408, end: 20240408
  11. DEXAMETHASONE [Suspect]
     Active Substance: DEXAMETHASONE
     Dosage: UNK
     Route: 065
     Dates: start: 20240409, end: 20240409
  12. DEXAMETHASONE [Suspect]
     Active Substance: DEXAMETHASONE
     Dosage: UNK
     Route: 065
     Dates: start: 20240409, end: 20240409
  13. DEXAMETHASONE [Suspect]
     Active Substance: DEXAMETHASONE
     Dosage: UNK
     Route: 065
     Dates: start: 20240409, end: 20240409
  14. DEXAMETHASONE [Suspect]
     Active Substance: DEXAMETHASONE
     Dosage: UNK
     Route: 065
     Dates: start: 20240409, end: 20240409
  15. DEXAMETHASONE [Suspect]
     Active Substance: DEXAMETHASONE
     Dosage: UNK
     Route: 065
     Dates: start: 20240410
  16. DEXAMETHASONE [Suspect]
     Active Substance: DEXAMETHASONE
     Dosage: UNK
     Route: 065
     Dates: start: 20240410
  17. DEXAMETHASONE [Suspect]
     Active Substance: DEXAMETHASONE
     Dosage: UNK
     Route: 065
     Dates: start: 20240410
  18. OPDIVO [Suspect]
     Active Substance: NIVOLUMAB
     Indication: Non-small cell lung cancer
     Dosage: 360.000MG TIW
     Route: 042
     Dates: start: 20240313
  19. YERVOY [Suspect]
     Active Substance: IPILIMUMAB
     Indication: Non-small cell lung cancer
     Dosage: 88.000MG
     Route: 042
     Dates: start: 20240313
  20. AKYNZEO [Concomitant]
     Indication: Product used for unknown indication
     Dosage: UNK
     Route: 065
     Dates: start: 20240426
  21. ALLOPURINOL [Concomitant]
     Active Substance: ALLOPURINOL
     Indication: Product used for unknown indication
     Dosage: UNK
     Route: 065
     Dates: start: 20240426
  22. AMPHOTERICIN B [Concomitant]
     Active Substance: AMPHOTERICIN B
     Indication: Product used for unknown indication
     Dosage: 4-6 DAILYUNK
     Route: 065
     Dates: start: 20240416
  23. AMPHOTERICIN B [Concomitant]
     Active Substance: AMPHOTERICIN B
     Dosage: 4-6 DAILYUNK
     Route: 065
     Dates: start: 20240416
  24. CARBOPLATIN [Concomitant]
     Active Substance: CARBOPLATIN
     Indication: Non-small cell lung cancer
     Dosage: AUC5UNK
     Route: 065
     Dates: start: 20240409
  25. CARBOPLATIN [Concomitant]
     Active Substance: CARBOPLATIN
     Route: 065
     Dates: start: 20240409
  26. CARBOPLATIN [Concomitant]
     Active Substance: CARBOPLATIN
     Route: 065
     Dates: start: 20240409
  27. ELIDEL [Concomitant]
     Active Substance: PIMECROLIMUS
     Indication: Product used for unknown indication
     Dosage: UNK
     Route: 065
  28. ELIDEL [Concomitant]
     Active Substance: PIMECROLIMUS
     Dosage: UNK
     Route: 065
  29. ELIDEL [Concomitant]
     Active Substance: PIMECROLIMUS
     Dosage: UNK
     Route: 065
  30. FOLIC ACID [Concomitant]
     Active Substance: FOLIC ACID
     Indication: Prophylaxis
     Dosage: UNK
     Route: 065
     Dates: start: 20240313
  31. FOLIC ACID [Concomitant]
     Active Substance: FOLIC ACID
     Dosage: UNK
     Route: 065
     Dates: start: 20240313
  32. FOLIC ACID [Concomitant]
     Active Substance: FOLIC ACID
     Dosage: UNK
     Route: 065
     Dates: start: 20240313
  33. FOLIC ACID [Concomitant]
     Active Substance: FOLIC ACID
     Dosage: UNK
     Route: 065
     Dates: start: 20240313
  34. FOLIC ACID [Concomitant]
     Active Substance: FOLIC ACID
     Dosage: UNK
     Route: 065
     Dates: start: 20240313
  35. FOLIC ACID [Concomitant]
     Active Substance: FOLIC ACID
     Dosage: UNK
     Route: 065
     Dates: start: 20240313
  36. FOLIC ACID [Concomitant]
     Active Substance: FOLIC ACID
     Dosage: UNK
     Route: 065
     Dates: start: 20240313
  37. FOLIC ACID [Concomitant]
     Active Substance: FOLIC ACID
     Dosage: UNK
     Route: 065
     Dates: start: 20240313
  38. FOLIC ACID [Concomitant]
     Active Substance: FOLIC ACID
     Dosage: UNK
     Route: 065
     Dates: start: 20240313
  39. FOLIC ACID [Concomitant]
     Active Substance: FOLIC ACID
     Dosage: UNK
     Route: 065
     Dates: start: 20240313
  40. FOLIC ACID [Concomitant]
     Active Substance: FOLIC ACID
     Dosage: UNK
     Route: 065
     Dates: start: 20240313
  41. INSULIN ASPART [Concomitant]
     Active Substance: INSULIN ASPART
     Indication: Product used for unknown indication
     Dosage: ACCORDING TO SCHEMEUNK
     Route: 065
  42. INSULIN ASPART [Concomitant]
     Active Substance: INSULIN ASPART
     Dosage: ACCORDING TO SCHEMEUNK
     Route: 065
  43. INSULIN ASPART [Concomitant]
     Active Substance: INSULIN ASPART
     Dosage: ACCORDING TO SCHEMEUNK
     Route: 065
  44. INSULIN ASPART [Concomitant]
     Active Substance: INSULIN ASPART
     Dosage: ACCORDING TO SCHEMEUNK
     Route: 065
  45. INSULIN ASPART [Concomitant]
     Active Substance: INSULIN ASPART
     Dosage: ACCORDING TO SCHEMEUNK
     Route: 065
  46. INSULIN ASPART [Concomitant]
     Active Substance: INSULIN ASPART
     Dosage: ACCORDING TO SCHEMEUNK
     Route: 065
  47. INSULIN ASPART [Concomitant]
     Active Substance: INSULIN ASPART
     Dosage: ACCORDING TO SCHEMEUNK
     Route: 065
  48. INSULIN ASPART [Concomitant]
     Active Substance: INSULIN ASPART
     Dosage: ACCORDING TO SCHEMEUNK
     Route: 065
  49. INSULIN ASPART [Concomitant]
     Active Substance: INSULIN ASPART
     Dosage: ACCORDING TO SCHEMEUNK
     Route: 065
  50. INSULIN ASPART [Concomitant]
     Active Substance: INSULIN ASPART
     Dosage: ACCORDING TO SCHEMEUNK
     Route: 065
  51. INSULIN ASPART [Concomitant]
     Active Substance: INSULIN ASPART
     Dosage: ACCORDING TO SCHEMEUNK
     Route: 065
  52. INSULIN GLARGINE [Concomitant]
     Active Substance: INSULIN GLARGINE
     Indication: Product used for unknown indication
     Dosage: 30 I.E. IN THE EVENINGUNK
     Route: 065
  53. INSULIN GLARGINE [Concomitant]
     Active Substance: INSULIN GLARGINE
     Dosage: 30 I.E. IN THE EVENINGUNK
     Route: 065
  54. INSULIN GLARGINE [Concomitant]
     Active Substance: INSULIN GLARGINE
     Dosage: 30 I.E. IN THE EVENINGUNK
     Route: 065
  55. INSULIN GLARGINE [Concomitant]
     Active Substance: INSULIN GLARGINE
     Dosage: 30 I.E. IN THE EVENINGUNK
     Route: 065
  56. INSULIN GLARGINE [Concomitant]
     Active Substance: INSULIN GLARGINE
     Dosage: 30 I.E. IN THE EVENINGUNK
     Route: 065
  57. INSULIN GLARGINE [Concomitant]
     Active Substance: INSULIN GLARGINE
     Dosage: 30 I.E. IN THE EVENINGUNK
     Route: 065
  58. INSULIN GLARGINE [Concomitant]
     Active Substance: INSULIN GLARGINE
     Dosage: 30I.E. IN THE EVENINGUNK
     Route: 065
  59. INSULIN GLARGINE [Concomitant]
     Active Substance: INSULIN GLARGINE
     Dosage: 30I.E. IN THE EVENINGUNK
     Route: 065
  60. MCP [Concomitant]
     Active Substance: METOCLOPRAMIDE HYDROCHLORIDE
     Indication: Prophylaxis
     Dosage: UNK
     Route: 065
     Dates: start: 20240313
  61. METFORMIN [Concomitant]
     Active Substance: METFORMIN HYDROCHLORIDE
     Indication: Product used for unknown indication
     Dosage: 1000UNK
     Route: 065
  62. METFORMIN [Concomitant]
     Active Substance: METFORMIN HYDROCHLORIDE
     Dosage: 1000UNK
     Route: 065
     Dates: end: 20240405
  63. METFORMIN [Concomitant]
     Active Substance: METFORMIN HYDROCHLORIDE
     Dosage: 1000UNK
     Route: 065
     Dates: end: 20240405
  64. METFORMIN [Concomitant]
     Active Substance: METFORMIN HYDROCHLORIDE
     Dosage: 1000UNK
     Route: 065
     Dates: end: 20240405
  65. METFORMIN [Concomitant]
     Active Substance: METFORMIN HYDROCHLORIDE
     Dosage: 1000UNK
     Route: 065
  66. METFORMIN [Concomitant]
     Active Substance: METFORMIN HYDROCHLORIDE
     Dosage: 1000UNK
     Route: 065
  67. SODIUM CHLORIDE [Concomitant]
     Active Substance: SODIUM CHLORIDE
     Indication: Product used for unknown indication
     Dosage: (ORAL INTAKE RESTRICTED, 1 L NACL 0,9% RECEIVED SUPPORTIVELY)UNK
     Route: 065
     Dates: start: 20240422, end: 20240422
  68. OLMESARTAN [Concomitant]
     Active Substance: OLMESARTAN
     Indication: Product used for unknown indication
     Dosage: UNK
     Route: 065
  69. OLMESARTAN [Concomitant]
     Active Substance: OLMESARTAN
     Dosage: UNK
     Route: 065
     Dates: start: 20220101
  70. OLMESARTAN [Concomitant]
     Active Substance: OLMESARTAN
     Dosage: UNK
     Route: 065
     Dates: start: 20220101
  71. OLMESARTAN [Concomitant]
     Active Substance: OLMESARTAN
     Dosage: UNK
     Route: 065
     Dates: start: 20220101
  72. OLMESARTAN [Concomitant]
     Active Substance: OLMESARTAN
     Dosage: UNK
     Route: 065
     Dates: start: 20220101
  73. PANTOPRAZOLE SODIUM [Concomitant]
     Active Substance: PANTOPRAZOLE SODIUM
     Indication: Prophylaxis
     Dosage: UNK
     Route: 065
     Dates: start: 20240313
  74. PEMETREXED [Concomitant]
     Active Substance: PEMETREXED
     Indication: Product used for unknown indication
     Dosage: FIRST DOSEUNK
     Route: 065
     Dates: start: 20240313
  75. PEMETREXED [Concomitant]
     Active Substance: PEMETREXED
     Dosage: FIRST DOSEUNK
     Route: 065
     Dates: start: 20240313, end: 20240409
  76. PEMETREXED [Concomitant]
     Active Substance: PEMETREXED
     Dosage: FIRST DOSEUNK
     Route: 065
     Dates: start: 20240313, end: 20240409
  77. PEMETREXED [Concomitant]
     Active Substance: PEMETREXED
     Dosage: FIRST DOSEUNK
     Route: 065
     Dates: start: 20240313, end: 20240409
  78. PEMETREXED [Concomitant]
     Active Substance: PEMETREXED
     Dosage: FIRST DOSEUNK
     Route: 065
     Dates: start: 20240313, end: 20240409
  79. PEMETREXED [Concomitant]
     Active Substance: PEMETREXED
     Dosage: FIRST DOSEUNK
     Route: 065
     Dates: start: 20240313
  80. PEMETREXED [Concomitant]
     Active Substance: PEMETREXED
     Dosage: FIRST DOSEUNK
     Route: 065
     Dates: start: 20240313
  81. PEMETREXED [Concomitant]
     Active Substance: PEMETREXED
     Dosage: FIRST DOSEUNK
     Route: 065
     Dates: start: 20240313
  82. PEMETREXED [Concomitant]
     Active Substance: PEMETREXED
     Dosage: FIRST DOSEUNK
     Route: 065
     Dates: start: 20240313
  83. PEMETREXED [Concomitant]
     Active Substance: PEMETREXED
     Dosage: FIRST DOSEUNK
     Route: 065
     Dates: start: 20240409
  84. PEMETREXED [Concomitant]
     Active Substance: PEMETREXED
     Dosage: FIRST DOSEUNK
     Route: 065
     Dates: start: 20240409
  85. PEMETREXED [Concomitant]
     Active Substance: PEMETREXED
     Dosage: FIRST DOSEUNK
     Route: 065
     Dates: start: 20240409
  86. PEMETREXED [Concomitant]
     Active Substance: PEMETREXED
     Dosage: FIRST DOSEUNK
     Route: 065
     Dates: start: 20240409
  87. PEMETREXED [Concomitant]
     Active Substance: PEMETREXED
     Dosage: FIRST DOSEUNK
     Route: 065
     Dates: start: 20240409
  88. PEMETREXED [Concomitant]
     Active Substance: PEMETREXED
     Dosage: FIRST DOSEUNK
     Route: 065
     Dates: start: 20240409
  89. PREDNISOLONE [Concomitant]
     Active Substance: PREDNISOLONE
     Indication: Product used for unknown indication
     Dosage: UNK
     Route: 065
     Dates: start: 20240426
  90. HYDROXYCHLOROQUINE [Concomitant]
     Active Substance: HYDROXYCHLOROQUINE
     Indication: Product used for unknown indication
     Dosage: UNK
     Route: 065
  91. HYDROXYCHLOROQUINE [Concomitant]
     Active Substance: HYDROXYCHLOROQUINE
     Indication: Product used for unknown indication
     Dosage: UNK
     Route: 065
  92. HYDROXYCHLOROQUINE [Concomitant]
     Active Substance: HYDROXYCHLOROQUINE
     Dosage: UNK
     Route: 065
  93. HYDROXYCHLOROQUINE [Concomitant]
     Active Substance: HYDROXYCHLOROQUINE
     Dosage: UNK
     Route: 065
  94. HYDROXYCHLOROQUINE [Concomitant]
     Active Substance: HYDROXYCHLOROQUINE
     Dosage: UNK
     Route: 065
  95. HYDROXYCHLOROQUINE [Concomitant]
     Active Substance: HYDROXYCHLOROQUINE
     Dosage: UNK
     Route: 065
  96. HYDROXYCHLOROQUINE [Concomitant]
     Active Substance: HYDROXYCHLOROQUINE
     Dosage: UNK
     Route: 065
  97. HYDROXYCHLOROQUINE [Concomitant]
     Active Substance: HYDROXYCHLOROQUINE
     Dosage: UNK
     Route: 065
  98. HYDROXYCHLOROQUINE [Concomitant]
     Active Substance: HYDROXYCHLOROQUINE
     Dosage: UNK
     Route: 065
  99. HYDROXYCHLOROQUINE [Concomitant]
     Active Substance: HYDROXYCHLOROQUINE
     Dosage: UNK
     Route: 065
  100. HYDROXYCHLOROQUINE [Concomitant]
     Active Substance: HYDROXYCHLOROQUINE
     Dosage: UNK
     Route: 065
  101. VITAMIN B12 [Concomitant]
     Active Substance: CYANOCOBALAMIN
     Indication: Prophylaxis
     Dosage: ON THE DAY OF PEMETREXED ADMINISTRATIONUNK
     Route: 065
     Dates: start: 20240313
  102. VITAMIN B12 [Concomitant]
     Active Substance: CYANOCOBALAMIN
     Dosage: ON THE DAY OF PEMETREXED ADMINISTRATIONUNK
     Route: 065
     Dates: start: 20240313
  103. VITAMIN B12 [Concomitant]
     Active Substance: CYANOCOBALAMIN
     Dosage: ON THE DAY OF PEMETREXED ADMINISTRATIONUNK
     Route: 065
     Dates: start: 20240313
  104. VITAMIN B12 [Concomitant]
     Active Substance: CYANOCOBALAMIN
     Dosage: ON THE DAY OF PEMETREXED ADMINISTRATIONUNK
     Route: 065
     Dates: start: 20240313
  105. VITAMIN B12 [Concomitant]
     Active Substance: CYANOCOBALAMIN
     Dosage: ON THE DAY OF PEMETREXED ADMINISTRATIONUNK
     Route: 065
     Dates: start: 20240313
  106. VITAMIN B12 [Concomitant]
     Active Substance: CYANOCOBALAMIN
     Dosage: ON THE DAY OF PEMETREXED ADMINISTRATIONUNK
     Route: 065
     Dates: start: 20240313
  107. VITAMIN B12 [Concomitant]
     Active Substance: CYANOCOBALAMIN
     Dosage: ON THE DAY OF PEMETREXED ADMINISTRATIONUNK
     Route: 065
     Dates: start: 20240313
  108. VITAMIN B12 [Concomitant]
     Active Substance: CYANOCOBALAMIN
     Dosage: ON THE DAY OF PEMETREXED ADMINISTRATIONUNK
     Route: 065
     Dates: start: 20240313
  109. VITAMIN D [Concomitant]
     Active Substance: VITAMIN D NOS
     Indication: Prophylaxis
     Dosage: 4000UNK
     Route: 065

REACTIONS (7)
  - Pneumonia [Recovered/Resolved]
  - Syncope [Unknown]
  - Tumour necrosis [Recovered/Resolved]
  - Metastases to central nervous system [Unknown]
  - Generalised tonic-clonic seizure [Recovered/Resolved]
  - Stomatitis [Not Recovered/Not Resolved]
  - Blood creatinine increased [Unknown]

NARRATIVE: CASE EVENT DATE: 20240301
